FAERS Safety Report 5221357-8 (Version None)
Quarter: 2007Q1

REPORT INFORMATION
  Report Type: 
  Country: None (occurrence: None)
  Receive Date: 20070126
  Receipt Date: 20070115
  Transmission Date: 20070707
  Serious: Yes (Other)
  Sender: FDA-Public Use
  Company Number: US-PFIZER INC-2007004498

PATIENT
  Sex: Female
  Weight: 81.6 kg

DRUGS (4)
  1. DILANTIN [Suspect]
     Indication: CONVULSION
  2. DEPAKOTE [Concomitant]
  3. KLONOPIN [Concomitant]
  4. ALL OTHER THERAPEUTIC PRODUCTS [Concomitant]

REACTIONS (2)
  - BRAIN NEOPLASM [None]
  - CONVULSION [None]
